FAERS Safety Report 9335938 (Version 1)
Quarter: 2013Q2

REPORT INFORMATION
  Report Type: Spontaneous
  Country: US (occurrence: US)
  Receive Date: 20130606
  Receipt Date: 20130606
  Transmission Date: 20140414
  Serious: No
  Sender: FDA-Public Use
  Company Number: US-AMGEN-USASP2013026858

PATIENT
  Age: 77 Year
  Sex: Female

DRUGS (4)
  1. PROLIA [Suspect]
     Indication: BONE DENSITY DECREASED
     Dosage: UNK
     Dates: start: 20130320
  2. CYMBALTA [Concomitant]
     Indication: ARTHRITIS
     Dosage: 60 MG, UNK
  3. MELOXICAM [Concomitant]
     Dosage: 15 MG, UNK
  4. CLONAZEPAM [Concomitant]
     Dosage: 0.5 MG, TID

REACTIONS (9)
  - Pain [Unknown]
  - Bunion [Unknown]
  - Headache [Unknown]
  - Neck pain [Unknown]
  - Local swelling [Unknown]
  - Myalgia [Not Recovered/Not Resolved]
  - Bone pain [Not Recovered/Not Resolved]
  - Local swelling [Unknown]
  - Pain in extremity [Unknown]
